FAERS Safety Report 17953271 (Version 1)
Quarter: 2020Q2

REPORT INFORMATION
  Report Type: Spontaneous
  Country: US (occurrence: US)
  Receive Date: 20200627
  Receipt Date: 20200627
  Transmission Date: 20200714
  Serious: Yes (Death)
  Sender: FDA-Public Use
  Company Number: NVSC2020US180685

PATIENT
  Age: 60 Year
  Sex: Female

DRUGS (1)
  1. DECITABINE. [Suspect]
     Active Substance: DECITABINE
     Indication: ACUTE MYELOID LEUKAEMIA
     Dosage: UNK, 7 PLUS 3 REGIMEN WITH NO CLINICAL RESPONSE FOLLOWED BY ANOTHER 10 DAY COURSE
     Route: 065

REACTIONS (4)
  - Treatment failure [Unknown]
  - Product use in unapproved indication [Unknown]
  - Acute myeloid leukaemia [Fatal]
  - Malignant neoplasm progression [Fatal]
